FAERS Safety Report 6317412-1 (Version None)
Quarter: 2009Q3

REPORT INFORMATION
  Report Type: 
  Country: None (occurrence: None)
  Receive Date: 20090820
  Receipt Date: 20090820
  Transmission Date: 20100115
  Serious: Yes (Disabling, Other)
  Sender: FDA-Public Use
  Company Number: None

PATIENT
  Sex: Female
  Weight: 63.5036 kg

DRUGS (8)
  1. FOSAMAX [Suspect]
     Indication: OSTEOPOROSIS
     Dosage: DAILY ORAL
     Route: 048
     Dates: start: 20030101, end: 20080101
  2. FOSAMAX [Suspect]
     Indication: RESORPTION BONE INCREASED
     Dosage: DAILY ORAL
     Route: 048
     Dates: start: 20030101, end: 20080101
  3. PROZAC [Concomitant]
  4. WELLBUTRIN [Concomitant]
  5. NAPROXEN [Concomitant]
  6. ATENONAL [Concomitant]
  7. CELEBREX [Concomitant]
  8. FOSAMAX [Concomitant]

REACTIONS (6)
  - ECONOMIC PROBLEM [None]
  - JAW DISORDER [None]
  - JOINT CREPITATION [None]
  - PAIN IN JAW [None]
  - SENSITIVITY OF TEETH [None]
  - TOOTH LOSS [None]
